FAERS Safety Report 10905706 (Version 1)
Quarter: 2015Q1

REPORT INFORMATION
  Report Type: Report from Study
  Country: US (occurrence: US)
  Receive Date: 20150311
  Receipt Date: 20150311
  Transmission Date: 20150721
  Serious: Yes (Hospitalization)
  Sender: FDA-Public Use
  Company Number: US-SANOFI-AVENTIS-2012SA044074

PATIENT
  Age: 78 Year
  Sex: Male
  Weight: 77.2 kg

DRUGS (8)
  1. DRUG ELUTING STENT [Suspect]
     Active Substance: DEVICE
     Indication: CORONARY ARTERY DISEASE
     Dates: start: 20100914, end: 20100914
  2. FENTANYL. [Concomitant]
     Active Substance: FENTANYL
  3. HEPARIN [Concomitant]
     Active Substance: HEPARIN SODIUM
  4. BLINDED THERAPY [Suspect]
     Active Substance: INVESTIGATIONAL PRODUCT
     Indication: CORONARY ARTERY DISEASE
     Route: 065
     Dates: start: 20111018, end: 20120518
  5. ANGIOMAX [Concomitant]
     Active Substance: BIVALIRUDIN
  6. PLAVIX [Suspect]
     Active Substance: CLOPIDOGREL BISULFATE
     Indication: CORONARY ARTERY DISEASE
     Route: 048
     Dates: start: 20100915, end: 20120518
  7. ASPIRIN. [Suspect]
     Active Substance: ASPIRIN
     Indication: CORONARY ARTERY DISEASE
     Route: 065
     Dates: start: 2008, end: 20120518
  8. VERSED [Concomitant]
     Active Substance: MIDAZOLAM HYDROCHLORIDE

REACTIONS (1)
  - Coronary artery restenosis [Recovered/Resolved]

NARRATIVE: CASE EVENT DATE: 20120518
